FAERS Safety Report 5351604-3 (Version None)
Quarter: 2007Q2

REPORT INFORMATION
  Report Type: 
  Country: None (occurrence: None)
  Receive Date: 20070522
  Receipt Date: 20060721
  Transmission Date: 20071010
  Serious: Yes (Hospitalization)
  Sender: FDA-Public Use
  Company Number: 2005BH000556

PATIENT
  Age: 78 Year
  Sex: Male

DRUGS (11)
  1. HEPARIN SODIUM [Suspect]
     Indication: CATHETERISATION CARDIAC
     Dosage: IV
     Route: 042
  2. WARFARIN SODIUM [Concomitant]
  3. METOPROLOL SUCCINATE [Concomitant]
  4. FUROSEMIDE [Concomitant]
  5. CAPTOPRIL [Concomitant]
  6. ISOSORBIDE MONONITRATE [Concomitant]
  7. DIGOXIN [Concomitant]
  8. ALENDRONATE SODIUM [Concomitant]
  9. CALCIUM CARBONATE [Concomitant]
  10. PREDNISONE TAB [Concomitant]
  11. ACETYLCYSTEINE [Concomitant]

REACTIONS (1)
  - THROMBOCYTOPENIA [None]
